FAERS Safety Report 17463833 (Version 3)
Quarter: 2020Q1

REPORT INFORMATION
  Report Type: Spontaneous
  Country: US (occurrence: US)
  Receive Date: 20200226
  Receipt Date: 20200324
  Transmission Date: 20200409
  Serious: Yes (Other)
  Sender: FDA-Public Use
  Company Number: US-BIO PRODUCTS LABORATORY LTD-2080922

PATIENT
  Age: 22 Year
  Sex: Male

DRUGS (1)
  1. GENERIC IVIG [Suspect]
     Active Substance: HUMAN IMMUNOGLOBULIN G
     Route: 042
     Dates: end: 20130104

REACTIONS (2)
  - Off label use [Recovered/Resolved]
  - Hepatosplenic T-cell lymphoma [Recovered/Resolved]
